FAERS Safety Report 8493687-8 (Version None)
Quarter: 2012Q3

REPORT INFORMATION
  Report Type: 
  Country: None (occurrence: None)
  Receive Date: 20120706
  Receipt Date: 20120613
  Transmission Date: 20120928
  Serious: Yes (Other)
  Sender: FDA-Public Use
  Company Number: PHHY2012SA051197

PATIENT
  Age: 1 Month
  Sex: Female

DRUGS (1)
  1. SANDOSTATIN [Suspect]
     Indication: GASTROINTESTINAL DISORDER
     Dosage: 2 PG/KG/DSC
     Route: 042

REACTIONS (2)
  - HYPOGLYCAEMIA [None]
  - DRUG ADMINISTERED TO PATIENT OF INAPPROPRIATE AGE [None]
